FAERS Safety Report 8586098-8 (Version None)
Quarter: 2012Q3

REPORT INFORMATION
  Report Type: 
  Country: None (occurrence: None)
  Receive Date: 20120810
  Receipt Date: 20120802
  Transmission Date: 20120928
  Serious: Yes (Death)
  Sender: FDA-Public Use
  Company Number: CN-ROCHE-1094776

PATIENT
  Age: 65 Year
  Sex: Male
  Weight: 67.5 kg

DRUGS (3)
  1. PLAVIX [Concomitant]
     Indication: TRANSIENT ISCHAEMIC ATTACK
  2. ASPIRIN [Suspect]
     Indication: TRANSIENT ISCHAEMIC ATTACK
     Route: 048
     Dates: start: 20120724, end: 20120724
  3. ACTIVASE [Suspect]
     Indication: TRANSIENT ISCHAEMIC ATTACK
     Route: 042
     Dates: start: 20120724, end: 20120724

REACTIONS (3)
  - EYELID BLEEDING [None]
  - HAEMORRHAGE INTRACRANIAL [None]
  - MOUTH HAEMORRHAGE [None]
